FAERS Safety Report 19626692 (Version 3)
Quarter: 2022Q3

REPORT INFORMATION
  Report Type: Spontaneous
  Country: US (occurrence: US)
  Receive Date: 20210728
  Receipt Date: 20220912
  Transmission Date: 20221027
  Serious: Yes (Other)
  Sender: FDA-Public Use
  Company Number: US-JNJFOC-20210751818

PATIENT
  Age: 65 Year
  Sex: Male
  Weight: 97.5 kg

DRUGS (8)
  1. TREMFYA [Suspect]
     Active Substance: GUSELKUMAB
     Indication: Psoriasis
     Route: 058
     Dates: start: 20210629, end: 20210929
  2. TREMFYA [Suspect]
     Active Substance: GUSELKUMAB
  3. TREMFYA [Suspect]
     Active Substance: GUSELKUMAB
  4. ACETAMINOPHEN\HYDROCODONE [Concomitant]
     Active Substance: ACETAMINOPHEN\HYDROCODONE
     Route: 048
  5. METOPROLOL [Concomitant]
     Active Substance: METOPROLOL
     Indication: Hypertension
     Route: 065
  6. HALOBETASOL PROPIONATE [Concomitant]
     Active Substance: HALOBETASOL PROPIONATE
     Indication: Product used for unknown indication
     Route: 061
  7. ROSUVASTATIN CALCIUM [Concomitant]
     Active Substance: ROSUVASTATIN CALCIUM
     Indication: Product used for unknown indication
     Route: 048
  8. EZETIMIBE [Concomitant]
     Active Substance: EZETIMIBE
     Indication: Product used for unknown indication
     Route: 048

REACTIONS (2)
  - Hernia [Not Recovered/Not Resolved]
  - Psoriasis [Not Recovered/Not Resolved]

NARRATIVE: CASE EVENT DATE: 20210715
